FAERS Safety Report 25035349 (Version 1)
Quarter: 2025Q1

REPORT INFORMATION
  Report Type: Spontaneous
  Country: TW (occurrence: TW)
  Receive Date: 20250304
  Receipt Date: 20250304
  Transmission Date: 20250409
  Serious: Yes (Life-Threatening, Other)
  Sender: Haleon PLC
  Company Number: TW-002147023-NVSC2025TW023628

PATIENT
  Age: 85 Year
  Sex: Male
  Weight: 57.7 kg

DRUGS (7)
  1. VOLTAREN [Suspect]
     Active Substance: DICLOFENAC SODIUM
     Indication: Analgesic therapy
     Route: 048
     Dates: start: 20250120, end: 20250210
  2. VOLTAREN [Suspect]
     Active Substance: DICLOFENAC SODIUM
     Indication: Antiinflammatory therapy
  3. MIRABEGRON [Concomitant]
     Active Substance: MIRABEGRON
     Indication: Product used for unknown indication
     Dates: start: 20250109, end: 20250206
  4. ARCOXIA [Suspect]
     Active Substance: ETORICOXIB
     Indication: Analgesic therapy
     Route: 048
     Dates: start: 20250113, end: 20250210
  5. ARCOXIA [Suspect]
     Active Substance: ETORICOXIB
     Indication: Antiinflammatory therapy
  6. TAMSULOSIN [Concomitant]
     Active Substance: TAMSULOSIN
     Indication: Product used for unknown indication
     Dates: start: 20250109, end: 20250206
  7. GABAPENTIN [Concomitant]
     Active Substance: GABAPENTIN
     Indication: Product used for unknown indication
     Dates: start: 20250113, end: 20250210

REACTIONS (3)
  - Gastric ulcer perforation [Recovering/Resolving]
  - Abdominal abscess [Recovering/Resolving]
  - Gastrointestinal haemorrhage [Unknown]

NARRATIVE: CASE EVENT DATE: 20250128
